FAERS Safety Report 14935011 (Version 1)
Quarter: 2018Q2

REPORT INFORMATION
  Report Type: Spontaneous
  Country: US (occurrence: US)
  Receive Date: 20180524
  Receipt Date: 20180524
  Transmission Date: 20180711
  Serious: Yes (Death, Hospitalization)
  Sender: FDA-Public Use
  Company Number: US-TEVA-2018-US-895040

PATIENT
  Sex: Male

DRUGS (5)
  1. ETOPOSIDE. [Suspect]
     Active Substance: ETOPOSIDE
     Indication: HISTIOCYTOSIS HAEMATOPHAGIC
     Route: 042
  2. METHOTREXATE. [Suspect]
     Active Substance: METHOTREXATE
     Route: 065
  3. DEXAMETHASONE. [Suspect]
     Active Substance: DEXAMETHASONE
     Indication: HISTIOCYTOSIS HAEMATOPHAGIC
     Route: 042
  4. PREDNISONE. [Suspect]
     Active Substance: PREDNISONE
     Route: 065
  5. ADALIMUMAB [Suspect]
     Active Substance: ADALIMUMAB
     Route: 065

REACTIONS (8)
  - Viral infection [Fatal]
  - Stenotrophomonas infection [Unknown]
  - Aspergillus infection [Unknown]
  - Histiocytosis haematophagic [Fatal]
  - Typhus rickettsia test positive [Recovered/Resolved]
  - Sepsis [Unknown]
  - Cerebral infarction [Not Recovered/Not Resolved]
  - Candida infection [Unknown]
